FAERS Safety Report 8401709-5 (Version None)
Quarter: 2012Q2

REPORT INFORMATION
  Report Type: 
  Country: None (occurrence: None)
  Receive Date: 20120601
  Receipt Date: 20120528
  Transmission Date: 20120825
  Serious: Yes (Other)
  Sender: FDA-Public Use
  Company Number: BR-JNJFOC-20120520358

PATIENT
  Sex: Female

DRUGS (1)
  1. LEVAQUIN [Suspect]
     Indication: TRACHEOBRONCHITIS
     Dosage: AT 3 PM
     Route: 048
     Dates: start: 20120526

REACTIONS (5)
  - HALLUCINATION [None]
  - FEELING ABNORMAL [None]
  - DIZZINESS [None]
  - VOMITING [None]
  - CHILLS [None]
